FAERS Safety Report 11919567 (Version 2)
Quarter: 2016Q3

REPORT INFORMATION
  Report Type: Report from Study
  Country: US (occurrence: US)
  Receive Date: 20160115
  Receipt Date: 20160812
  Transmission Date: 20161109
  Serious: Yes (Hospitalization)
  Sender: FDA-Public Use
  Company Number: US-ROCHE-1694435

PATIENT
  Age: 75 Year
  Sex: Male

DRUGS (44)
  1. LOVASTATIN. [Concomitant]
     Active Substance: LOVASTATIN
  2. PREGABALIN. [Concomitant]
     Active Substance: PREGABALIN
  3. SODIUM CHLORIDE. [Concomitant]
     Active Substance: SODIUM CHLORIDE
     Dosage: 0.9% 1000 ML
     Route: 042
  4. CATHFLO ACTIVASE [Concomitant]
     Active Substance: ALTEPLASE
     Route: 042
  5. ROBAXIN [Concomitant]
     Active Substance: METHOCARBAMOL
     Route: 065
  6. OBINUTUZUMAB [Suspect]
     Active Substance: OBINUTUZUMAB
     Indication: NON-HODGKIN^S LYMPHOMA
     Route: 042
  7. LENALIDOMIDE [Suspect]
     Active Substance: LENALIDOMIDE
     Indication: NON-HODGKIN^S LYMPHOMA
     Route: 048
  8. OMEPRAZOL [Concomitant]
     Active Substance: OMEPRAZOLE
  9. FLAGYL [Concomitant]
     Active Substance: METRONIDAZOLE\METRONIDAZOLE HYDROCHLORIDE
     Dosage: 500 MG/100 ML NS
     Route: 042
  10. ZYRTEC [Concomitant]
     Active Substance: CETIRIZINE HYDROCHLORIDE
     Dosage: AT BED TIME
     Route: 048
  11. DEXTROSE. [Concomitant]
     Active Substance: DEXTROSE
     Dosage: 50%
     Route: 065
  12. ULTRAM [Concomitant]
     Active Substance: TRAMADOL HYDROCHLORIDE
     Route: 048
  13. DILAUDID [Concomitant]
     Active Substance: HYDROMORPHONE HYDROCHLORIDE
     Route: 042
  14. NARCAN [Concomitant]
     Active Substance: NALOXONE HYDROCHLORIDE
     Route: 042
  15. DEMEROL [Concomitant]
     Active Substance: MEPERIDINE HYDROCHLORIDE
     Dosage: 25 MG/ML
     Route: 065
  16. ZOFRAN [Concomitant]
     Active Substance: ONDANSETRON HYDROCHLORIDE
     Dosage: 4 MG/2ML
     Route: 065
  17. ROCEPHIN [Concomitant]
     Active Substance: CEFTRIAXONE SODIUM
     Dosage: 1 MG
     Route: 042
  18. MAXIPIME [Concomitant]
     Active Substance: CEFEPIME HYDROCHLORIDE
     Route: 042
     Dates: start: 20160107, end: 20160108
  19. PEPCID [Concomitant]
     Active Substance: FAMOTIDINE
     Route: 042
  20. TYLENOL [Concomitant]
     Active Substance: ACETAMINOPHEN
     Route: 048
  21. ZYLOPRIM [Concomitant]
     Active Substance: ALLOPURINOL
     Route: 048
  22. DIPRIVAN [Concomitant]
     Active Substance: PROPOFOL
     Dosage: 200MG/20 ML
     Route: 065
  23. INDOCIN [Concomitant]
     Active Substance: INDOMETHACIN\INDOMETHACIN SODIUM
     Route: 065
  24. OXYCODONE/PARACETAMOL [Concomitant]
     Active Substance: ACETAMINOPHEN\OXYCODONE HYDROCHLORIDE
     Route: 048
  25. METFORMIN [Concomitant]
     Active Substance: METFORMIN HYDROCHLORIDE
     Route: 065
  26. LYRICA [Concomitant]
     Active Substance: PREGABALIN
     Route: 048
  27. CLARITIN (UNITED STATES) [Concomitant]
  28. ALLOPURINOL. [Concomitant]
     Active Substance: ALLOPURINOL
     Route: 065
  29. LANTUS [Concomitant]
     Active Substance: INSULIN GLARGINE
     Dosage: AS REQUIRED AT BED TIME
     Route: 065
  30. GLUCOPHAGE [Concomitant]
     Active Substance: METFORMIN HYDROCHLORIDE
     Route: 048
  31. HYDROCODONE BITARTRATE. [Concomitant]
     Active Substance: HYDROCODONE BITARTRATE
     Dosage: EVERY 4 HOURS
     Route: 048
  32. EPHEDRINE. [Concomitant]
     Active Substance: EPHEDRINE
     Dosage: 50 MG-ML
     Route: 065
  33. MIRAPEX [Concomitant]
     Active Substance: PRAMIPEXOLE DIHYDROCHLORIDE
  34. CAPSAICIN. [Concomitant]
     Active Substance: CAPSAICIN
  35. ELIQUIS [Concomitant]
     Active Substance: APIXABAN
  36. PRAVACOL [Concomitant]
     Active Substance: PRAVASTATIN SODIUM
     Dosage: DAILY
     Route: 048
  37. PHENERGAN [Concomitant]
     Active Substance: PROMETHAZINE HYDROCHLORIDE
     Route: 065
  38. TRAMADOL. [Concomitant]
     Active Substance: TRAMADOL
  39. HUMALOG [Concomitant]
     Active Substance: INSULIN LISPRO
  40. GLUCAGON. [Concomitant]
     Active Substance: GLUCAGON
     Route: 065
  41. APRESOLINE HYDROCHLORIDE [Concomitant]
     Active Substance: HYDRALAZINE HYDROCHLORIDE
     Dosage: 20MG/ML
     Route: 065
  42. OFIRMEV [Concomitant]
     Active Substance: ACETAMINOPHEN
     Dosage: 100 MG/100 ML
     Route: 065
  43. PROTONIX [Concomitant]
     Active Substance: PANTOPRAZOLE SODIUM
     Dosage: DAILY AT 600
     Route: 048
  44. HEPARIN [Concomitant]
     Active Substance: HEPARIN SODIUM

REACTIONS (1)
  - Gallbladder obstruction [Not Recovered/Not Resolved]

NARRATIVE: CASE EVENT DATE: 20160107
